FAERS Safety Report 7380408-5 (Version None)
Quarter: 2011Q1

REPORT INFORMATION
  Report Type: 
  Country: None (occurrence: None)
  Receive Date: 20110329
  Receipt Date: 20110324
  Transmission Date: 20110831
  Serious: Yes (Other)
  Sender: FDA-Public Use
  Company Number: US-ROCHE-761230

PATIENT
  Age: 64 Year
  Sex: Female

DRUGS (3)
  1. AVASTIN [Suspect]
     Route: 065
  2. AVASTIN [Suspect]
     Route: 065
     Dates: start: 20100601
  3. ABRAXANE [Suspect]
     Route: 065
     Dates: start: 20100601

REACTIONS (2)
  - NEOPLASM [None]
  - DISEASE PROGRESSION [None]
